FAERS Safety Report 9006230 (Version 3)
Quarter: 2013Q1

REPORT INFORMATION
  Report Type: Spontaneous
  Country: JP (occurrence: JP)
  Receive Date: 20130110
  Receipt Date: 20130131
  Transmission Date: 20140127
  Serious: Yes (Hospitalization)
  Sender: FDA-Public Use
  Company Number: JP-009507513-1301JPN003347

PATIENT
  Age: 43 Year
  Sex: Male
  Weight: 84 kg

DRUGS (10)
  1. PEGINTRON [Suspect]
     Indication: CHRONIC HEPATITIS C
     Dosage: 1.5 MICROGRAM PER KILOGRAM, QW
     Route: 058
     Dates: start: 20121016, end: 20121225
  2. REBETOL [Suspect]
     Indication: CHRONIC HEPATITIS C
     Dosage: 1000 MG, QD
     Route: 048
     Dates: start: 20121016, end: 20121112
  3. REBETOL [Suspect]
     Dosage: 800 MG, QD
     Route: 048
     Dates: start: 20121113, end: 20121203
  4. REBETOL [Suspect]
     Dosage: 400 MG, QD
     Route: 048
     Dates: start: 20121204, end: 20130104
  5. TELAVIC [Suspect]
     Indication: CHRONIC HEPATITIS C
     Dosage: 1500 MG, QD
     Route: 048
     Dates: start: 20121016, end: 20121226
  6. MICARDIS [Concomitant]
     Dosage: 20 MG, QD, FORMULATION POR
     Route: 048
  7. GLACTIV [Concomitant]
     Dosage: 50 MG, QD , FORMULATION POR
     Route: 048
  8. METGLUCO [Concomitant]
     Dosage: 500 MG, QD, FORMULATION POR
     Route: 048
  9. HORMONES (UNSPECIFIED) [Concomitant]
     Dosage: 13, 9 , 11 UNITS PER DAY, UNK
     Route: 058
  10. LANTUS [Concomitant]
     Dosage: 10 UNITS PER DAY, UNK
     Route: 058

REACTIONS (2)
  - Rash [Recovering/Resolving]
  - Rash [Recovering/Resolving]
